FAERS Safety Report 20937148 (Version 1)
Quarter: 2022Q2

REPORT INFORMATION
  Report Type: Spontaneous
  Country: US (occurrence: None)
  Receive Date: 20220609
  Receipt Date: 20220609
  Transmission Date: 20220721
  Serious: No
  Sender: FDA-Public Use
  Company Number: US-ROCHE-2913842

PATIENT
  Sex: Female
  Weight: 67.192 kg

DRUGS (4)
  1. ACTEMRA [Suspect]
     Active Substance: TOCILIZUMAB
     Indication: Rheumatoid arthritis
     Dosage: STRENGTH 162MG/0.9ML
     Route: 058
     Dates: start: 20210511
  2. ACTEMRA [Suspect]
     Active Substance: TOCILIZUMAB
  3. PROZAC [Concomitant]
     Active Substance: FLUOXETINE HYDROCHLORIDE
     Route: 048
     Dates: start: 20200803
  4. ACTEMRA [Concomitant]
     Active Substance: TOCILIZUMAB
     Route: 042
     Dates: start: 20210609

REACTIONS (2)
  - Product use issue [Unknown]
  - No adverse event [Unknown]
